FAERS Safety Report 23264304 (Version 1)
Quarter: 2023Q4

REPORT INFORMATION
  Report Type: Spontaneous
  Country: US (occurrence: US)
  Receive Date: 20231205
  Receipt Date: 20231205
  Transmission Date: 20240109
  Serious: No
  Sender: FDA-Public Use
  Company Number: US-BAUSCH-BL-2023-017838

PATIENT
  Sex: Male

DRUGS (3)
  1. IPRATROPIUM BROMIDE [Suspect]
     Active Substance: IPRATROPIUM BROMIDE\IPRATROPIUM BROMIDE ANHYDROUS
     Indication: Rhinitis
     Dosage: TWO SPRAYS INTO EACH NOSTRIL EVERY DAY ABOUT 15 YEARS AGO
     Route: 045
     Dates: end: 20231127
  2. LISINOPRIL [Concomitant]
     Active Substance: LISINOPRIL
     Indication: Product used for unknown indication
  3. SIMVASTATIN [Concomitant]
     Active Substance: SIMVASTATIN
     Indication: Product used for unknown indication

REACTIONS (1)
  - Halo vision [Not Recovered/Not Resolved]

NARRATIVE: CASE EVENT DATE: 20231101
